FAERS Safety Report 5562981-2 (Version None)
Quarter: 2007Q4

REPORT INFORMATION
  Report Type: 
  Country: None (occurrence: None)
  Receive Date: 20071217
  Receipt Date: 20071213
  Transmission Date: 20080405
  Serious: Yes (Other)
  Sender: FDA-Public Use
  Company Number: CH-BRISTOL-MYERS SQUIBB COMPANY-14015325

PATIENT
  Age: 58 Year
  Sex: Male

DRUGS (8)
  1. PRAVASTATIN [Suspect]
     Indication: HYPERCHOLESTEROLAEMIA
     Route: 048
     Dates: start: 20060901, end: 20070901
  2. ACCUPRO [Concomitant]
     Route: 048
  3. AMLODIPINE [Concomitant]
     Route: 048
  4. OMEPRAZOLE [Concomitant]
     Route: 048
  5. ASPIRIN [Concomitant]
     Route: 048
  6. EUTHYROX [Concomitant]
  7. SPIRIVA [Concomitant]
     Dosage: ALSO TAKEN AS CAPSULES
     Route: 055
  8. SEREVENT [Concomitant]

REACTIONS (2)
  - MYALGIA [None]
  - MYOSITIS [None]
